FAERS Safety Report 13646615 (Version 1)
Quarter: 2017Q2

REPORT INFORMATION
  Report Type: Spontaneous
  Country: US (occurrence: US)
  Receive Date: 20170612
  Receipt Date: 20170612
  Transmission Date: 20170830
  Serious: Yes (Hospitalization)
  Sender: FDA-Public Use
  Company Number: None

PATIENT
  Age: 42 Year
  Sex: Male
  Weight: 85.35 kg

DRUGS (1)
  1. ALLERGENIC EXTRACTS [Suspect]
     Active Substance: ALLERGENIC EXTRACTS
     Indication: SEASONAL ALLERGY
     Dosage: 0.1ML OF 1:1 WEEKLY SUBQ
     Route: 058
     Dates: start: 20160714

REACTIONS (6)
  - Erythema [None]
  - Anaphylactic reaction [None]
  - Blood pressure decreased [None]
  - Wheezing [None]
  - Nausea [None]
  - Cough [None]

NARRATIVE: CASE EVENT DATE: 20170518
